FAERS Safety Report 21537005 (Version 1)
Quarter: 2022Q4

REPORT INFORMATION
  Report Type: Spontaneous
  Country: US (occurrence: None)
  Receive Date: 20221101
  Receipt Date: 20221101
  Transmission Date: 20230112
  Serious: Yes (Other)
  Sender: FDA-Public Use
  Company Number: None

PATIENT
  Age: 37 Year
  Sex: Female

DRUGS (1)
  1. AMPHETAMINE\DEXTROAMPHETAMINE [Suspect]
     Active Substance: AMPHETAMINE\DEXTROAMPHETAMINE
     Dosage: FREQUENCY : 3 TIMES A DAY;?
     Route: 048

REACTIONS (3)
  - Amnesia [None]
  - Dysarthria [None]
  - Eyelid ptosis [None]

NARRATIVE: CASE EVENT DATE: 20221101
